FAERS Safety Report 19868290 (Version 1)
Quarter: 2021Q3

REPORT INFORMATION
  Report Type: Spontaneous
  Country: CA (occurrence: CA)
  Receive Date: 20210921
  Receipt Date: 20210921
  Transmission Date: 20211014
  Serious: Yes (Hospitalization, Other)
  Sender: FDA-Public Use
  Company Number: CA-PFIZER INC-202101197967

PATIENT
  Age: 64 Year
  Sex: Male

DRUGS (9)
  1. PEGLYTE [Suspect]
     Active Substance: POLYETHYLENE GLYCOL 3350\POTASSIUM CHLORIDE\SODIUM BICARBONATE\SODIUM CHLORIDE\SODIUM SULFATE
     Indication: BOWEL PREPARATION
  2. TOLTERODINE [Concomitant]
     Active Substance: TOLTERODINE
     Indication: HYPERTONIC BLADDER
  3. INFLIXIMAB [Suspect]
     Active Substance: INFLIXIMAB
     Route: 042
  4. POTASSIUM CHLORIDE. [Suspect]
     Active Substance: POTASSIUM CHLORIDE
     Dosage: 600 MG, 2X/DAY
     Route: 065
  5. PEGLYTE [Suspect]
     Active Substance: POLYETHYLENE GLYCOL 3350\POTASSIUM CHLORIDE\SODIUM BICARBONATE\SODIUM CHLORIDE\SODIUM SULFATE
     Indication: COLONOSCOPY
     Route: 065
  6. HYDROMORPHONE HYDROCHLORIDE. [Concomitant]
     Active Substance: HYDROMORPHONE HYDROCHLORIDE
  7. PEGLYTE [Suspect]
     Active Substance: POLYETHYLENE GLYCOL 3350\POTASSIUM CHLORIDE\SODIUM BICARBONATE\SODIUM CHLORIDE\SODIUM SULFATE
     Indication: ENDOSCOPY UPPER GASTROINTESTINAL TRACT
     Route: 065
  8. TRAZODONE [Concomitant]
     Active Substance: TRAZODONE HYDROCHLORIDE
     Indication: NERVOUSNESS
  9. ASPIRIN [ACETYLSALICYLIC ACID] [Concomitant]
     Active Substance: ASPIRIN
     Indication: GASTROINTESTINAL PAIN

REACTIONS (14)
  - Diarrhoea [Not Recovered/Not Resolved]
  - Anal incontinence [Not Recovered/Not Resolved]
  - Asthenia [Not Recovered/Not Resolved]
  - Dehydration [Not Recovered/Not Resolved]
  - Feeding disorder [Not Recovered/Not Resolved]
  - Pain [Not Recovered/Not Resolved]
  - Peripheral swelling [Not Recovered/Not Resolved]
  - Product preparation issue [Not Recovered/Not Resolved]
  - Intentional product misuse [Not Recovered/Not Resolved]
  - Expired product administered [Not Recovered/Not Resolved]
  - Blood potassium decreased [Not Recovered/Not Resolved]
  - Pain in extremity [Not Recovered/Not Resolved]
  - Suicidal ideation [Not Recovered/Not Resolved]
  - Incorrect dose administered [Not Recovered/Not Resolved]
